FAERS Safety Report 17403988 (Version 1)
Quarter: 2020Q1

REPORT INFORMATION
  Report Type: Spontaneous
  Country: ES (occurrence: ES)
  Receive Date: 20200211
  Receipt Date: 20200211
  Transmission Date: 20200409
  Serious: No
  Sender: FDA-Public Use
  Company Number: ES-EMD SERONO-9133106

PATIENT
  Age: 34 Year
  Sex: Female

DRUGS (4)
  1. MAVENCLAD [Suspect]
     Active Substance: CLADRIBINE
     Indication: RELAPSING-REMITTING MULTIPLE SCLEROSIS
     Dosage: FIRST CYCLE THERAPY
     Route: 048
     Dates: start: 20190805, end: 20190809
  2. MAVENCLAD [Suspect]
     Active Substance: CLADRIBINE
     Dosage: SECOND CYCLE THERAPY
     Route: 048
     Dates: start: 20190902, end: 20190906
  3. HIDROFEROL [Concomitant]
     Active Substance: CALCIFEDIOL
     Indication: VITAMIN D DEFICIENCY
     Dosage: AMPOULE MONTHLY BEVERAGE
  4. ORFIDAL [Concomitant]
     Active Substance: LORAZEPAM
     Indication: ANXIETY

REACTIONS (16)
  - Multiple sclerosis relapse [Unknown]
  - Dyspnoea [Recovering/Resolving]
  - Headache [Recovering/Resolving]
  - Taste disorder [Recovering/Resolving]
  - Photophobia [Unknown]
  - Gamma-glutamyltransferase increased [Recovered/Resolved]
  - Alanine aminotransferase increased [Recovered/Resolved]
  - Nausea [Recovering/Resolving]
  - Dysuria [Recovering/Resolving]
  - Dizziness [Recovering/Resolving]
  - Malaise [Recovering/Resolving]
  - Vertigo [Unknown]
  - Lymphocyte count decreased [Unknown]
  - Decreased appetite [Recovering/Resolving]
  - Asthenia [Recovering/Resolving]
  - Phonophobia [Unknown]

NARRATIVE: CASE EVENT DATE: 201909
